FAERS Safety Report 5872523-X (Version None)
Quarter: 2008Q3

REPORT INFORMATION
  Report Type: 
  Country: None (occurrence: None)
  Receive Date: 20080905
  Receipt Date: 20080904
  Transmission Date: 20090109
  Serious: Yes (Hospitalization)
  Sender: FDA-Public Use
  Company Number: US-BRISTOL-MYERS SQUIBB COMPANY-14325013

PATIENT
  Age: 32 Year
  Sex: Female
  Weight: 52 kg

DRUGS (2)
  1. COUMADIN [Suspect]
     Route: 048
  2. SEASONIQUE [Suspect]
     Indication: DYSMENORRHOEA
     Dosage: DF= TABLET
     Route: 048
     Dates: start: 20071001, end: 20071201

REACTIONS (4)
  - COUGH [None]
  - HAEMORRHAGIC OVARIAN CYST [None]
  - OVARIAN CYST [None]
  - PULMONARY EMBOLISM [None]
